FAERS Safety Report 8383375-0 (Version None)
Quarter: 2012Q1

REPORT INFORMATION
  Report Type: 
  Country: None (occurrence: None)
  Receive Date: 20120323
  Receipt Date: 20110524
  Transmission Date: 20120608
  Serious: Yes (Hospitalization)
  Sender: FDA-Public Use
  Company Number: 163-21880-11051150

PATIENT
  Age: 58 Year
  Sex: Female
  Weight: 89.2 kg

DRUGS (12)
  1. REGLAN [Concomitant]
  2. FLUID (BARIUM SULFATE) [Concomitant]
  3. AREDIA [Concomitant]
  4. LORTAB [Concomitant]
  5. RESTORIL [Concomitant]
  6. WARFARIN SODIUM [Concomitant]
  7. FENTANYL [Concomitant]
  8. PREVACID [Concomitant]
  9. REVLIMID [Suspect]
     Indication: MULTIPLE MYELOMA
     Dosage: 10 MG, 1 IN 1 D, PO
     Route: 048
     Dates: start: 20101129
  10. DEXAMETHASONE [Concomitant]
  11. PHENERGAN HCL [Concomitant]
  12. COUMADIN [Concomitant]

REACTIONS (1)
  - GASTRITIS [None]
